FAERS Safety Report 4953909-4 (Version None)
Quarter: 2006Q1

REPORT INFORMATION
  Report Type: 
  Country: None (occurrence: None)
  Receive Date: 20060321
  Receipt Date: 20060306
  Transmission Date: 20060701
  Serious: Yes (Hospitalization, Disabling)
  Sender: FDA-Public Use
  Company Number: 012136

PATIENT
  Age: 57 Year
  Sex: Male

DRUGS (16)
  1. PRIALT (ZICONOTIDE INTRATHECAL INFUSION) SOLUTION [Suspect]
     Indication: PAIN
     Dosage: SEE IMAGE
     Route: 037
     Dates: start: 20050817, end: 20050825
  2. PRIALT (ZICONOTIDE INTRATHECAL INFUSION) SOLUTION [Suspect]
     Indication: PAIN
     Dosage: SEE IMAGE
     Route: 037
     Dates: start: 20050825, end: 20050927
  3. PRIALT (ZICONOTIDE INTRATHECAL INFUSION) SOLUTION [Suspect]
     Indication: PAIN
     Dosage: SEE IMAGE
     Route: 037
     Dates: start: 20050927, end: 20051018
  4. PRIALT (ZICONOTIDE INTRATHECAL INFUSION) SOLUTION [Suspect]
     Indication: PAIN
     Dosage: SEE IMAGE
     Route: 037
     Dates: start: 20051018, end: 20051102
  5. PRIALT (ZICONOTIDE INTRATHECAL INFUSION) SOLUTION [Suspect]
     Indication: PAIN
     Dosage: SEE IMAGE
     Route: 037
     Dates: start: 20051102, end: 20051116
  6. PRIALT (ZICONOTIDE INTRATHECAL INFUSION) SOLUTION [Suspect]
     Indication: PAIN
     Dosage: SEE IMAGE
     Route: 037
     Dates: start: 20051116, end: 20051201
  7. PRIALT (ZICONOTIDE INTRATHECAL INFUSION) SOLUTION [Suspect]
     Indication: PAIN
     Dosage: SEE IMAGE
     Route: 037
     Dates: start: 20051201, end: 20051228
  8. PRIALT (ZICONOTIDE INTRATHECAL INFUSION) SOLUTION [Suspect]
     Indication: PAIN
     Dosage: SEE IMAGE
     Route: 037
     Dates: start: 20051228, end: 20060126
  9. PRIALT (ZICONOTIDE INTRATHECAL INFUSION) SOLUTION [Suspect]
     Indication: PAIN
     Dosage: SEE IMAGE
     Route: 037
     Dates: start: 20060126, end: 20060208
  10. PRIALT (ZICONOTIDE INTRATHECAL INFUSION) SOLUTION [Suspect]
     Indication: PAIN
     Dosage: SEE IMAGE
     Route: 037
     Dates: start: 20060208, end: 20060214
  11. LORCET-HD [Concomitant]
  12. LIDODERM [Concomitant]
  13. TRAZODONE HCL [Concomitant]
  14. FENTANYL [Concomitant]
  15. LYRICA [Concomitant]
  16. CYMBALTA [Concomitant]

REACTIONS (14)
  - ABASIA [None]
  - ASTHENIA [None]
  - BACK PAIN [None]
  - DEPRESSION [None]
  - DIFFICULTY IN WALKING [None]
  - DISEASE PROGRESSION [None]
  - FALL [None]
  - GAIT DISTURBANCE [None]
  - HYDROCEPHALUS [None]
  - MEMORY IMPAIRMENT [None]
  - PAIN [None]
  - PAIN IN EXTREMITY [None]
  - PHARYNGOLARYNGEAL PAIN [None]
  - THERAPY NON-RESPONDER [None]
